FAERS Safety Report 9163984 (Version 4)
Quarter: 2013Q4

REPORT INFORMATION
  Report Type: Report from Study
  Country: GR (occurrence: GR)
  Receive Date: 20130314
  Receipt Date: 20131218
  Transmission Date: 20140711
  Serious: Yes (Hospitalization)
  Sender: FDA-Public Use
  Company Number: GR-PFIZER INC-2013079925

PATIENT
  Age: 61 Year
  Sex: Female
  Weight: 44 kg

DRUGS (3)
  1. TEMSIROLIMUS [Suspect]
     Indication: PANCREATIC CARCINOMA METASTATIC
     Dosage: 25 MG, WEEKLY
     Route: 042
     Dates: start: 20130102
  2. GEMCITABINE [Suspect]
     Indication: PANCREATIC CARCINOMA METASTATIC
     Dosage: 1000 MG, CYCLIC (EVERY TWO WEEKS)
     Route: 042
     Dates: start: 20130102
  3. NAPROSYN [Concomitant]
     Indication: PYREXIA
     Dosage: 250 MG, 1X2
     Route: 048
     Dates: start: 20130220, end: 20130225

REACTIONS (1)
  - Febrile neutropenia [Recovered/Resolved]
